FAERS Safety Report 17157207 (Version 1)
Quarter: 2019Q4

REPORT INFORMATION
  Report Type: Spontaneous
  Country: DE (occurrence: DE)
  Receive Date: 20191216
  Receipt Date: 20191216
  Transmission Date: 20200122
  Serious: Yes (Other)
  Sender: FDA-Public Use
  Company Number: DE-ACCORD-165545

PATIENT
  Age: 85 Year
  Sex: Male
  Weight: 69 kg

DRUGS (3)
  1. AMLODIPINE [Concomitant]
     Active Substance: AMLODIPINE BESYLATE
     Indication: HYPERTENSION
     Dosage: 0-0-1, STRENGTH: 5 MG
     Route: 048
  2. NOVALGIN [Concomitant]
     Indication: PAIN
     Dosage: STRENGTH: 500 MG, IF REQUIRED
     Route: 048
  3. RAMIPRIL. [Suspect]
     Active Substance: RAMIPRIL
     Indication: HYPERTENSION
     Dosage: STRENGTH: 2.5 MG,1-0-0
     Route: 048

REACTIONS (2)
  - Cholestasis [Not Recovered/Not Resolved]
  - Hepatitis acute [Not Recovered/Not Resolved]
